FAERS Safety Report 4946995-9 (Version None)
Quarter: 2006Q1

REPORT INFORMATION
  Report Type: 
  Country: None (occurrence: None)
  Receive Date: 20060317
  Receipt Date: 20040115
  Transmission Date: 20060701
  Serious: Yes (Hospitalization)
  Sender: FDA-Public Use
  Company Number: DE-ROCHE-356200

PATIENT
  Age: 48 Year
  Sex: Male

DRUGS (33)
  1. MYCOPHENOLATE MOFETIL [Suspect]
     Route: 065
     Dates: start: 20031220, end: 20031229
  2. MYCOPHENOLATE MOFETIL [Suspect]
     Route: 065
     Dates: start: 20031230, end: 20040114
  3. MYCOPHENOLATE MOFETIL [Suspect]
     Route: 065
     Dates: start: 20040115, end: 20040130
  4. MYCOPHENOLATE MOFETIL [Suspect]
     Route: 065
     Dates: start: 20040131, end: 20040202
  5. CYCLOSPORINE [Suspect]
     Dosage: DOSE ADJUSTED TO REACH PREDEFINED TARGET LEVELS.
     Route: 065
     Dates: start: 20031220
  6. METHYLPREDNISOLONE [Suspect]
     Route: 065
     Dates: start: 20031220, end: 20031220
  7. METHYLPREDNISOLONE [Suspect]
     Route: 065
     Dates: start: 20031221, end: 20031221
  8. METHYLPREDNISOLONE [Suspect]
     Route: 065
     Dates: start: 20031222, end: 20031222
  9. METHYLPREDNISOLONE [Suspect]
     Route: 065
     Dates: start: 20031223, end: 20031223
  10. METHYLPREDNISOLONE [Suspect]
     Route: 065
     Dates: start: 20031224, end: 20031224
  11. METHYLPREDNISOLONE [Suspect]
     Route: 065
     Dates: start: 20031225, end: 20031225
  12. METHYLPREDNISOLONE [Suspect]
     Route: 065
     Dates: start: 20031226, end: 20031226
  13. METHYLPREDNISOLONE [Suspect]
     Route: 065
     Dates: start: 20031227, end: 20031227
  14. METHYLPREDNISOLONE [Suspect]
     Route: 065
     Dates: start: 20031228, end: 20031228
  15. METHYLPREDNISOLONE [Suspect]
     Route: 065
     Dates: start: 20031229, end: 20040329
  16. METHYLPREDNISOLONE [Suspect]
     Route: 065
     Dates: start: 20040330, end: 20040426
  17. METHYLPREDNISOLONE [Suspect]
     Route: 065
     Dates: start: 20040427
  18. DILTIAZEM RETARD [Concomitant]
     Dates: start: 20031219
  19. DOXAZOSINMESILAT [Concomitant]
     Dates: start: 20031221
  20. METOPROLOL SUCCINATE [Concomitant]
     Dates: start: 20031221, end: 20031221
  21. CLONIDIN [Concomitant]
     Dosage: STOPPED ON 20 DECEMBER 2003 AND RESTARTED ON 22 DECEMBER 2003.
     Dates: start: 20031220
  22. NIFEDIPINE [Concomitant]
     Dates: start: 20031220, end: 20031220
  23. CYTOMEGALIE-IMMUNGLOBULIN [Concomitant]
     Dates: start: 20031220, end: 20031220
  24. COTRIM [Concomitant]
     Dosage: STOPPED ON 24 DECEMBER 2004. RE-STARTED 02 JANUARY 2004.
     Dates: start: 20031220
  25. CEFTRIAXON [Concomitant]
     Dates: start: 20031220, end: 20031220
  26. GANCICLOVIR [Concomitant]
     Dates: start: 20031221
  27. CEFOTAXIM [Concomitant]
     Dates: start: 20031230, end: 20040105
  28. LEVOFLOXACIN [Concomitant]
     Dates: start: 20040104, end: 20040131
  29. IMIPENEM [Concomitant]
     Dates: start: 20040106, end: 20040131
  30. EPOETIN BETA [Concomitant]
     Dates: start: 20040103, end: 20040302
  31. LINEZOLID [Concomitant]
     Dates: start: 20040224
  32. PRAVASTATIN [Concomitant]
     Dates: start: 20040304
  33. AMLODIPINE [Concomitant]
     Dates: start: 20040201

REACTIONS (2)
  - LYMPHOCELE [None]
  - URINOMA [None]
